FAERS Safety Report 20150341 (Version 10)
Quarter: 2022Q2

REPORT INFORMATION
  Report Type: Spontaneous
  Country: CA (occurrence: CA)
  Receive Date: 20211206
  Receipt Date: 20220414
  Transmission Date: 20220721
  Serious: Yes (Hospitalization, Other)
  Sender: FDA-Public Use
  Company Number: CA-CELLTRION INC.-2021CA014916

PATIENT

DRUGS (9)
  1. INFLECTRA [Suspect]
     Active Substance: INFLIXIMAB-DYYB
     Indication: Crohn^s disease
     Dosage: 300 MG AT 0, 2, 6 WEEKS, THEN EVERY 8 WEEKS HOSPITAL START
     Route: 042
     Dates: start: 20211018, end: 20220125
  2. INFLECTRA [Suspect]
     Active Substance: INFLIXIMAB-DYYB
     Dosage: 300 MG AT 0, 2, 6 WEEKS, THEN EVERY 8 WEEKS
     Route: 042
     Dates: start: 20211101
  3. INFLECTRA [Suspect]
     Active Substance: INFLIXIMAB-DYYB
     Dosage: 300 MG AT 0, 2, 6 WEEKS, THEN EVERY 8 WEEKS
     Route: 042
     Dates: start: 20211130
  4. INFLECTRA [Suspect]
     Active Substance: INFLIXIMAB-DYYB
     Dosage: 5 MG/KG AT Q 0, 2, 6 WEEKS THEN Q 4 WEEKS
     Route: 042
     Dates: start: 20220304
  5. DIPHENHYDRAMINE [Concomitant]
     Active Substance: DIPHENHYDRAMINE
     Dosage: 25 MG
     Dates: start: 20211130, end: 20211130
  6. HYDROCORTISONE [Concomitant]
     Active Substance: HYDROCORTISONE
     Dosage: 100 MG
     Dates: start: 20211130, end: 20211130
  7. ACETAMINOPHEN [Concomitant]
     Active Substance: ACETAMINOPHEN
     Dosage: 650 MG
     Dates: start: 20211130, end: 20211130
  8. PREDNISONE [Concomitant]
     Active Substance: PREDNISONE
     Dosage: 35MG
  9. PREDNISONE [Concomitant]
     Active Substance: PREDNISONE
     Dosage: 30 MG (TAPERING)

REACTIONS (17)
  - Sepsis [Unknown]
  - Enterocutaneous fistula [Unknown]
  - Fistula [Not Recovered/Not Resolved]
  - Weight increased [Not Recovered/Not Resolved]
  - Blood pressure fluctuation [Unknown]
  - Infection [Not Recovered/Not Resolved]
  - Fistula discharge [Unknown]
  - Drug level below therapeutic [Unknown]
  - Nausea [Recovered/Resolved]
  - Peripheral swelling [Unknown]
  - Condition aggravated [Not Recovered/Not Resolved]
  - Joint swelling [Unknown]
  - Swelling [Unknown]
  - Arthralgia [Unknown]
  - Hepatic enzyme increased [Unknown]
  - Immune system disorder [Unknown]
  - Arthropathy [Unknown]

NARRATIVE: CASE EVENT DATE: 20211125
